FAERS Safety Report 6284546-X (Version None)
Quarter: 2009Q3

REPORT INFORMATION
  Report Type: 
  Country: None (occurrence: None)
  Receive Date: 20090723
  Receipt Date: 20090713
  Transmission Date: 20100115
  Serious: Yes (Other)
  Sender: FDA-Public Use
  Company Number: 2009008611

PATIENT
  Age: 57 Year
  Sex: Female
  Weight: 76.8847 kg

DRUGS (1)
  1. TRISENOX [Suspect]
     Indication: MYELODYSPLASTIC SYNDROME
     Dosage: 19 MG, CYCLICAL, INTRAVENOUS
     Route: 042
     Dates: start: 20050228, end: 20050815

REACTIONS (1)
  - PNEUMONITIS [None]
